FAERS Safety Report 10996074 (Version 2)
Quarter: 2015Q3

REPORT INFORMATION
  Report Type: Spontaneous
  Country: US (occurrence: US)
  Receive Date: 20150407
  Receipt Date: 20150709
  Transmission Date: 20151125
  Serious: No
  Sender: FDA-Public Use
  Company Number: US-ASTRAZENECA-2013SE53548

PATIENT
  Age: 58 Year
  Sex: Female
  Weight: 54.4 kg

DRUGS (2)
  1. SYMBICORT [Suspect]
     Active Substance: BUDESONIDE\FORMOTEROL FUMARATE DIHYDRATE
     Indication: CHRONIC OBSTRUCTIVE PULMONARY DISEASE
     Dosage: 160-4.5 MCG, 2 INHALATIONS BID
     Route: 055
  2. HIGH BLOOD PRESSURE MEDICATIONS [Concomitant]

REACTIONS (6)
  - Lung disorder [Unknown]
  - Intentional product use issue [Unknown]
  - Drug dose omission [Unknown]
  - Hypertension [Unknown]
  - Device malfunction [Unknown]
  - Dyspnoea [Unknown]
